FAERS Safety Report 9365179 (Version 4)
Quarter: 2014Q1

REPORT INFORMATION
  Report Type: Spontaneous
  Country: DE (occurrence: DE)
  Receive Date: 20130624
  Receipt Date: 20140306
  Transmission Date: 20141002
  Serious: Yes (Death, Hospitalization, Other)
  Sender: FDA-Public Use
  Company Number: DE-GILEAD-2013-0077543

PATIENT
  Age: 54 Year
  Sex: Male

DRUGS (3)
  1. TRUVADA [Suspect]
     Indication: HIV INFECTION
     Dosage: 500 MG, QD
     Route: 048
     Dates: start: 2001
  2. IBUPROFEN [Suspect]
     Indication: PAIN
     Dosage: 600 MG, QD
     Route: 048
     Dates: start: 20130217
  3. IBUPROFEN [Suspect]
     Dosage: 2400 MG, UNK

REACTIONS (5)
  - Malignant neoplasm of unknown primary site [Fatal]
  - Dialysis [Not Recovered/Not Resolved]
  - Renal failure [Not Recovered/Not Resolved]
  - Dizziness [Unknown]
  - Pain [Unknown]
